FAERS Safety Report 8320293-8 (Version None)
Quarter: 2012Q2

REPORT INFORMATION
  Report Type: 
  Country: None (occurrence: None)
  Receive Date: 20120426
  Receipt Date: 20120426
  Transmission Date: 20120825
  Serious: Yes (Other)
  Sender: FDA-Public Use
  Company Number: None

PATIENT
  Age: 43 Year
  Sex: Female
  Weight: 61.2356 kg

DRUGS (1)
  1. TRAMADOL HCL [Suspect]
     Indication: BACK PAIN
     Dosage: 50 MG 1 TO 2 EVERY 6 HR 3 TIMES DAY ORAL
     Route: 048
     Dates: start: 20110529, end: 20111130

REACTIONS (7)
  - DYSARTHRIA [None]
  - PALPITATIONS [None]
  - SEROTONIN SYNDROME [None]
  - MIGRAINE [None]
  - FEELING ABNORMAL [None]
  - DYSGEUSIA [None]
  - PRESYNCOPE [None]
